FAERS Safety Report 11227355 (Version 2)
Quarter: 2015Q3

REPORT INFORMATION
  Report Type: Report from Study
  Country: JP (occurrence: JP)
  Receive Date: 20150630
  Receipt Date: 20150729
  Transmission Date: 20151125
  Serious: Yes (Hospitalization)
  Sender: FDA-Public Use
  Company Number: JP-ROCHE-1599244

PATIENT
  Sex: Male
  Weight: 71.2 kg

DRUGS (14)
  1. RANIBIZUMAB [Suspect]
     Active Substance: RANIBIZUMAB
     Route: 050
     Dates: start: 20150501
  2. BLINDED VERTEPORFIN PDT [Suspect]
     Active Substance: VERTEPORFIN
     Indication: POLYPOIDAL CHOROIDAL VASCULOPATHY
     Route: 042
     Dates: start: 20150309
  3. SPIRIVA [Concomitant]
     Active Substance: TIOTROPIUM BROMIDE MONOHYDRATE
  4. COVERSYL [Concomitant]
     Active Substance: PERINDOPRIL
  5. METGLUCO [Concomitant]
     Active Substance: METFORMIN HYDROCHLORIDE
  6. GLIMEPIRIDE. [Concomitant]
     Active Substance: GLIMEPIRIDE
  7. LANIRAPID [Concomitant]
     Active Substance: METILDIGOXIN
  8. RANIBIZUMAB [Suspect]
     Active Substance: RANIBIZUMAB
     Route: 050
     Dates: start: 20150403
  9. ATORVASTATIN [Concomitant]
     Active Substance: ATORVASTATIN
  10. FAMOTIDINE. [Concomitant]
     Active Substance: FAMOTIDINE
  11. SYMBICORT [Concomitant]
     Active Substance: BUDESONIDE\FORMOTEROL FUMARATE DIHYDRATE
  12. RANIBIZUMAB [Suspect]
     Active Substance: RANIBIZUMAB
     Indication: POLYPOIDAL CHOROIDAL VASCULOPATHY
     Dosage: 0.5 MG/0.5 ML
     Route: 050
     Dates: start: 20150304
  13. BAKUMONDOTO [Concomitant]
     Active Substance: HERBALS
  14. JANUVIA [Concomitant]
     Active Substance: SITAGLIPTIN PHOSPHATE

REACTIONS (1)
  - Aortic aneurysm [Recovering/Resolving]
